FAERS Safety Report 10512432 (Version 1)
Quarter: 2014Q4

REPORT INFORMATION
  Report Type: Report from Study
  Country: BR (occurrence: BR)
  Receive Date: 20141010
  Receipt Date: 20141010
  Transmission Date: 20150528
  Serious: Yes (Life-Threatening, Hospitalization, Other)
  Sender: FDA-Public Use
  Company Number: PHHY2014BR131279

PATIENT
  Sex: Male

DRUGS (3)
  1. SANDOSTATIN LAR DEPOT [Suspect]
     Active Substance: OCTREOTIDE ACETATE
     Indication: NEUROENDOCRINE CARCINOMA
     Dosage: 20 MG, EACH 28 DAYS
     Route: 065
     Dates: start: 201403, end: 20140903
  2. SANDOSTATIN LAR DEPOT [Suspect]
     Active Substance: OCTREOTIDE ACETATE
     Dosage: UNK
  3. SANDOSTATIN LAR DEPOT [Suspect]
     Active Substance: OCTREOTIDE ACETATE
     Dosage: 30 MG, EVERY 28 DAYS
     Route: 065
     Dates: start: 20140903

REACTIONS (11)
  - Malignant neoplasm progression [Unknown]
  - Dyspnoea [Not Recovered/Not Resolved]
  - Localised intraabdominal fluid collection [Unknown]
  - Apnoea [Not Recovered/Not Resolved]
  - Weight decreased [Unknown]
  - Malaise [Unknown]
  - Cardio-respiratory arrest [Unknown]
  - Pleural effusion [Unknown]
  - Blood glucose abnormal [Unknown]
  - Concomitant disease aggravated [Unknown]
  - Drug ineffective [Unknown]
